FAERS Safety Report 20058300 (Version 2)
Quarter: 2022Q2

REPORT INFORMATION
  Report Type: Report from Study
  Country: US (occurrence: US)
  Receive Date: 20211111
  Receipt Date: 20220408
  Transmission Date: 20220721
  Serious: Yes (Hospitalization, Other)
  Sender: FDA-Public Use
  Company Number: US-KYOWAKIRIN-2021BKK018874

PATIENT

DRUGS (7)
  1. CRYSVITA [Suspect]
     Active Substance: BUROSUMAB-TWZA
     Dosage: 30 MG, EVERY 4 WEEKS
     Route: 058
     Dates: start: 201603, end: 2021
  2. CRYSVITA [Suspect]
     Active Substance: BUROSUMAB-TWZA
     Dosage: 30 MG, EVERY 4 WEEKS
     Route: 058
  3. NORVASC [Concomitant]
     Active Substance: AMLODIPINE BESYLATE
     Indication: Product used for unknown indication
     Dosage: UNK
     Route: 065
  4. CALCIUM CARBONATE [Concomitant]
     Active Substance: CALCIUM CARBONATE
     Indication: Product used for unknown indication
     Dosage: UNK
     Route: 065
  5. CHOLECALCIFEROL [Concomitant]
     Active Substance: CHOLECALCIFEROL
     Indication: Product used for unknown indication
     Dosage: UNK
     Route: 065
  6. TOPROL XL [Concomitant]
     Active Substance: METOPROLOL SUCCINATE
     Indication: Product used for unknown indication
     Dosage: UNK
     Route: 065
  7. FISH OIL [Concomitant]
     Active Substance: FISH OIL
     Indication: Product used for unknown indication
     Dosage: UNK
     Route: 065

REACTIONS (14)
  - Hypoaesthesia [Unknown]
  - Swelling [Not Recovered/Not Resolved]
  - Condition aggravated [Not Recovered/Not Resolved]
  - Odynophagia [Recovered/Resolved]
  - Dysphagia [Recovered/Resolved]
  - Dysphonia [Unknown]
  - Seroma [Recovering/Resolving]
  - Contusion [Not Recovered/Not Resolved]
  - Sensation of foreign body [Unknown]
  - Swelling face [Unknown]
  - Hypoaesthesia oral [Unknown]
  - Incision site discharge [Unknown]
  - Renal impairment [Not Recovered/Not Resolved]
  - Hyperparathyroidism tertiary [Not Recovered/Not Resolved]

NARRATIVE: CASE EVENT DATE: 20210714
